FAERS Safety Report 5506446-2 (Version None)
Quarter: 2007Q4

REPORT INFORMATION
  Report Type: 
  Country: None (occurrence: None)
  Receive Date: 20071101
  Receipt Date: 20071101
  Transmission Date: 20080405
  Serious: Yes (Life-Threatening)
  Sender: FDA-Public Use
  Company Number: None

PATIENT
  Sex: Male
  Weight: 92.9874 kg

DRUGS (3)
  1. BACTRIM DS [Suspect]
     Indication: SKIN INFECTION
     Dosage: 800MG/160MG BID PO
     Route: 048
     Dates: start: 20071020, end: 20071029
  2. BACTRIM DS [Suspect]
     Indication: STAPHYLOCOCCAL INFECTION
     Dosage: 800MG/160MG BID PO
     Route: 048
     Dates: start: 20071020, end: 20071029
  3. RIFAMPIN [Suspect]
     Dosage: PO
     Route: 048
     Dates: start: 20071020, end: 20071029

REACTIONS (5)
  - DIZZINESS [None]
  - HYPOTENSION [None]
  - HYPOXIA [None]
  - PRURITUS [None]
  - RASH MACULO-PAPULAR [None]
